FAERS Safety Report 9327841 (Version 1)
Quarter: 2013Q2

REPORT INFORMATION
  Report Type: Spontaneous
  Country: US (occurrence: US)
  Receive Date: 20130604
  Receipt Date: 20130604
  Transmission Date: 20140414
  Serious: Yes (Other)
  Sender: FDA-Public Use
  Company Number: US-BAYER-2013-066957

PATIENT
  Age: 3 Year
  Sex: Female
  Weight: 14 kg

DRUGS (1)
  1. BAYER CHEWABLE LOW DOSE BABY ASPIRIN TABLET ORANGE [Suspect]
     Indication: PYREXIA
     Dosage: 1 DF, UNK
     Route: 048
     Dates: start: 20130525

REACTIONS (6)
  - Off label use [None]
  - Off label use [None]
  - Accidental exposure to product by child [Not Recovered/Not Resolved]
  - Vomiting [Recovered/Resolved]
  - Failure of child resistant mechanism for pharmaceutical product [None]
  - Overdose [None]
